FAERS Safety Report 16885688 (Version 2)
Quarter: 2019Q4

REPORT INFORMATION
  Report Type: Report from Study
  Country: US (occurrence: US)
  Receive Date: 20191004
  Receipt Date: 20191202
  Transmission Date: 20200122
  Serious: Yes (Hospitalization, Other)
  Sender: FDA-Public Use
  Company Number: US-ACTELION-A-NJ2015-118792

PATIENT
  Age: 72 Year
  Sex: Female
  Weight: 95.24 kg

DRUGS (4)
  1. REVATIO [Concomitant]
     Active Substance: SILDENAFIL CITRATE
  2. VELETRI [Suspect]
     Active Substance: EPOPROSTENOL
     Indication: PULMONARY ARTERIAL HYPERTENSION
     Dosage: 14.1 NG/KG, PER MIN
     Route: 042
     Dates: start: 20120820
  3. WARFARIN [Concomitant]
     Active Substance: WARFARIN
  4. VELETRI [Suspect]
     Active Substance: EPOPROSTENOL
     Dosage: 15 NG/KG, PER MIN
     Route: 042

REACTIONS (11)
  - Fall [Unknown]
  - Urinary tract infection [Unknown]
  - Pain in extremity [Not Recovered/Not Resolved]
  - Device leakage [Unknown]
  - Confusional state [Unknown]
  - Cerebrovascular accident [Unknown]
  - Pain in jaw [Not Recovered/Not Resolved]
  - Asthenia [Unknown]
  - Flushing [Unknown]
  - Neuropathy peripheral [Unknown]
  - Foot fracture [Unknown]

NARRATIVE: CASE EVENT DATE: 20190923
